FAERS Safety Report 9993690 (Version 2)
Quarter: 2014Q1

REPORT INFORMATION
  Report Type: Spontaneous
  Country: US (occurrence: US)
  Receive Date: 20140310
  Receipt Date: 20140310
  Transmission Date: 20141002
  Serious: No
  Sender: FDA-Public Use
  Company Number: US-AMGEN-USASP2013046544

PATIENT
  Age: 86 Year
  Sex: Female
  Weight: 63.49 kg

DRUGS (1)
  1. SENSIPAR [Suspect]
     Indication: HYPERPARATHYROIDISM
     Dosage: 30 MG, QD
     Route: 048

REACTIONS (3)
  - Abdominal discomfort [Unknown]
  - Dyspnoea [Unknown]
  - Nervousness [Recovered/Resolved]
